FAERS Safety Report 17176997 (Version 13)
Quarter: 2024Q1

REPORT INFORMATION
  Report Type: Report from Study
  Country: DE (occurrence: DE)
  Receive Date: 20191219
  Receipt Date: 20240328
  Transmission Date: 20240410
  Serious: Yes (Hospitalization, Other)
  Sender: FDA-Public Use
  Company Number: DE-ROCHE-2214947

PATIENT
  Age: 40 Year
  Sex: Female

DRUGS (30)
  1. BUPRENORPHINE [Suspect]
     Active Substance: BUPRENORPHINE
     Indication: Trigeminal neuralgia
     Dosage: UNK
     Route: 065
     Dates: start: 20190805
  2. OCREVUS [Suspect]
     Active Substance: OCRELIZUMAB
     Indication: Secondary progressive multiple sclerosis
     Dosage: 300 MILLIGRAM, QD
     Route: 042
     Dates: start: 20180920
  3. OCREVUS [Suspect]
     Active Substance: OCRELIZUMAB
     Dosage: 600 MILLIGRAM, QD
     Route: 042
     Dates: start: 20180920, end: 20180920
  4. OCREVUS [Suspect]
     Active Substance: OCRELIZUMAB
     Dosage: 300 MILLIGRAM
     Route: 042
     Dates: start: 20181009
  5. OCREVUS [Suspect]
     Active Substance: OCRELIZUMAB
     Dosage: 600 MILLIGRAM
     Route: 042
     Dates: start: 20190508
  6. OCREVUS [Suspect]
     Active Substance: OCRELIZUMAB
     Dosage: 300 MILLIGRAM
     Route: 042
     Dates: start: 20180910
  7. OCREVUS [Suspect]
     Active Substance: OCRELIZUMAB
     Dosage: 600 MILLIGRAM
     Route: 042
     Dates: start: 20200526
  8. OCREVUS [Suspect]
     Active Substance: OCRELIZUMAB
     Dosage: 600 MILLIGRAM
     Route: 042
     Dates: start: 20201201
  9. OCREVUS [Suspect]
     Active Substance: OCRELIZUMAB
     Dosage: 600 MILLIGRAM
     Route: 042
     Dates: start: 20190526
  10. DALFAMPRIDINE [Suspect]
     Active Substance: DALFAMPRIDINE
     Indication: Product used for unknown indication
     Dosage: UNK
     Route: 065
     Dates: start: 20180617, end: 20180618
  11. DALFAMPRIDINE [Suspect]
     Active Substance: DALFAMPRIDINE
     Dosage: 2 UNK, QD
     Route: 065
     Dates: start: 20190617, end: 20190618
  12. COMIRNATY (TOZINAMERAN) [Suspect]
     Active Substance: TOZINAMERAN
     Indication: COVID-19
     Dosage: UNK
     Route: 065
     Dates: start: 20210514
  13. VAXZEVRIA [Suspect]
     Active Substance: AZD-1222
     Indication: COVID-19
     Dosage: UNK
     Route: 065
     Dates: start: 20210312
  14. DRONABINOL [Concomitant]
     Active Substance: DRONABINOL
     Indication: Product used for unknown indication
     Dosage: 20000 INTERNATIONAL UNIT,PRN (9-11 GTT (ONE IN ONE TIME), AS NECESSARY,12 DROPS (AT NIGHT))
     Route: 065
  15. CARBAMAZEPINE [Concomitant]
     Active Substance: CARBAMAZEPINE
     Indication: Product used for unknown indication
     Dosage: 100 MG(0.33 UNITS IN A DAY)
     Route: 065
  16. CARBAMAZEPINE [Concomitant]
     Active Substance: CARBAMAZEPINE
     Dosage: 300 MILLIGRAM, QD
     Route: 065
  17. CARBAMAZEPINE [Concomitant]
     Active Substance: CARBAMAZEPINE
     Dosage: 120 MILLIGRAM (HALF IN THE MORNING
     Route: 065
  18. CARBAMAZEPINE [Concomitant]
     Active Substance: CARBAMAZEPINE
     Dosage: 30 MILLIGRAM, HALF IN MORNING, HALF IN AFTERNOON, ONE IN EVENING, ONE AT NIGHT
     Route: 065
  19. CHOLECALCIFEROL [Concomitant]
     Active Substance: CHOLECALCIFEROL
     Indication: Product used for unknown indication
     Dosage: 2000 INTERNATIONAL UNIT, BID
     Route: 065
  20. DIENOGEST\ESTRADIOL VALERATE [Concomitant]
     Active Substance: DIENOGEST\ESTRADIOL VALERATE
     Indication: Product used for unknown indication
     Dosage: 400 MILLIGRAM
     Route: 065
  21. DIENOGEST\ESTRADIOL VALERATE [Concomitant]
     Active Substance: DIENOGEST\ESTRADIOL VALERATE
     Dosage: 20000 INTERNATIONAL UNIT, Q2D
     Route: 065
  22. DIENOGEST\ESTRADIOL VALERATE [Concomitant]
     Active Substance: DIENOGEST\ESTRADIOL VALERATE
     Dosage: UNK
     Route: 065
  23. BACLOFEN [Concomitant]
     Active Substance: BACLOFEN
     Indication: Product used for unknown indication
     Dosage: 120 MILLIGRAM (HALF IN MORNIN
     Route: 065
  24. BACLOFEN [Concomitant]
     Active Substance: BACLOFEN
     Dosage: 30 MG (HALF IN MORNING,
     Route: 065
  25. BACLOFEN [Concomitant]
     Active Substance: BACLOFEN
     Dosage: 15 MG (ONE IN MORNING,
     Route: 065
  26. BACLOFEN [Concomitant]
     Active Substance: BACLOFEN
     Dosage: 60 MILLIGRAM (ONE IN MORNING,
     Route: 065
  27. BACLOFEN [Concomitant]
     Active Substance: BACLOFEN
     Dosage: 60 MILLIGRAM (ONE IN MORNING
     Route: 065
  28. PREGABALIN [Concomitant]
     Active Substance: PREGABALIN
     Indication: Product used for unknown indication
     Dosage: 300 MILLIGRAM, MONTHLY
     Route: 065
  29. GABAPENTIN [Concomitant]
     Active Substance: GABAPENTIN
     Indication: Product used for unknown indication
     Dosage: 400 MILLIGRAM
     Route: 065
  30. GABAPENTIN [Concomitant]
     Active Substance: GABAPENTIN
     Dosage: 700 MILLIGRAM, QD
     Route: 065

REACTIONS (26)
  - Multiple sclerosis [Not Recovered/Not Resolved]
  - Trigeminal neuralgia [Recovered/Resolved]
  - COVID-19 [Recovered/Resolved]
  - Rib fracture [Recovered/Resolved]
  - Fall [Unknown]
  - Vomiting [Recovered/Resolved]
  - Nausea [Recovered/Resolved]
  - Off label use [Unknown]
  - Muscle spasticity [Not Recovered/Not Resolved]
  - Aphonia [Recovered/Resolved]
  - Facial pain [Recovered/Resolved]
  - Fatigue [Recovered/Resolved]
  - Hypoacusis [Not Recovered/Not Resolved]
  - Dacryostenosis acquired [Not Recovered/Not Resolved]
  - Retinal scar [Not Recovered/Not Resolved]
  - Anosmia [Not Recovered/Not Resolved]
  - Hypoaesthesia [Not Recovered/Not Resolved]
  - Visual impairment [Not Recovered/Not Resolved]
  - Gait disturbance [Not Recovered/Not Resolved]
  - Herpes ophthalmic [Not Recovered/Not Resolved]
  - Cough [Recovered/Resolved]
  - Headache [Recovered/Resolved]
  - Chills [Recovered/Resolved]
  - Asthenia [Recovered/Resolved]
  - Bone pain [Recovered/Resolved]
  - Pain [Unknown]

NARRATIVE: CASE EVENT DATE: 20180920
